FAERS Safety Report 8496048-0 (Version None)
Quarter: 2012Q3

REPORT INFORMATION
  Report Type: 
  Country: None (occurrence: None)
  Receive Date: 20120709
  Receipt Date: 20120704
  Transmission Date: 20120928
  Serious: Yes (Other)
  Sender: FDA-Public Use
  Company Number: AU-ROCHE-1085143

PATIENT
  Age: 65 Year
  Sex: Male

DRUGS (6)
  1. AVASTIN [Suspect]
     Indication: COLORECTAL CANCER METASTATIC
     Dates: start: 20101201
  2. ELOXATIN [Suspect]
     Indication: COLORECTAL CANCER METASTATIC
     Dates: start: 20101201
  3. FLUOROURACIL [Concomitant]
  4. XELODA [Suspect]
     Indication: COLORECTAL CANCER METASTATIC
     Dates: start: 20101201
  5. LEUCOVORIN CALCIUM [Concomitant]
  6. ELOXATIN [Concomitant]

REACTIONS (2)
  - GASTROINTESTINAL TOXICITY [None]
  - GASTROINTESTINAL PERFORATION [None]
